FAERS Safety Report 15804140 (Version 1)
Quarter: 2019Q1

REPORT INFORMATION
  Report Type: Spontaneous
  Country: US (occurrence: US)
  Receive Date: 20190109
  Receipt Date: 20190109
  Transmission Date: 20190417
  Serious: Yes (Death)
  Sender: FDA-Public Use
  Company Number: US-PFIZER INC-2019007797

PATIENT
  Age: 43 Year
  Sex: Female

DRUGS (2)
  1. TIZANIDINE. [Suspect]
     Active Substance: TIZANIDINE
     Dosage: UNK
     Route: 048
  2. BENZONATATE. [Suspect]
     Active Substance: BENZONATATE
     Dosage: UNK
     Route: 048

REACTIONS (1)
  - Completed suicide [Fatal]

NARRATIVE: CASE EVENT DATE: 2017
